FAERS Safety Report 8519927-4 (Version None)
Quarter: 2012Q3

REPORT INFORMATION
  Report Type: 
  Country: None (occurrence: None)
  Receive Date: 20120719
  Receipt Date: 20120712
  Transmission Date: 20120928
  Serious: Yes (Death, Life-Threatening, Other)
  Sender: FDA-Public Use
  Company Number: JP-BRISTOL-MYERS SQUIBB COMPANY-15172158

PATIENT
  Age: 86 Year
  Sex: Female
  Weight: 44 kg

DRUGS (7)
  1. PREDNISOLONE [Concomitant]
     Indication: ACUTE LYMPHOCYTIC LEUKAEMIA
     Dosage: TABS
     Route: 048
     Dates: end: 20100218
  2. MAGMITT [Concomitant]
     Dosage: TABS
     Route: 048
     Dates: end: 20100414
  3. SPRYCEL [Suspect]
     Indication: ACUTE LYMPHOCYTIC LEUKAEMIA
     Dosage: 26DEC-29DEC2009,70MG 29JAN-19FEB10,50MG 18MAR-09APR10,40MG
     Route: 048
     Dates: start: 20091226, end: 20100409
  4. ALLOPURINOL [Concomitant]
     Dosage: TABS
     Route: 048
     Dates: end: 20100414
  5. NIZATIDINE [Concomitant]
     Dosage: TABS
     Route: 048
     Dates: end: 20100414
  6. PROMACTA [Concomitant]
     Dosage: PROMAC D TABS
     Route: 048
     Dates: end: 20100414
  7. LASIX [Concomitant]
     Route: 048
     Dates: end: 20100414

REACTIONS (3)
  - INTERSTITIAL LUNG DISEASE [None]
  - NEOPLASM MALIGNANT [None]
  - DECREASED APPETITE [None]
